FAERS Safety Report 20543004 (Version 2)
Quarter: 2023Q1

REPORT INFORMATION
  Report Type: Report from Study
  Country: JP (occurrence: JP)
  Receive Date: 20220302
  Receipt Date: 20230303
  Transmission Date: 20230418
  Serious: Yes (Death, Other)
  Sender: FDA-Public Use
  Company Number: JP-GSKJP-JP2022JPN034151

PATIENT
  Sex: Female

DRUGS (17)
  1. BOTULINUM TOXIN TYPE A [Suspect]
     Active Substance: BOTULINUM TOXIN TYPE A
     Indication: Hypertonic bladder
     Dosage: 100 UNITS, SINGLE
     Route: 030
     Dates: start: 20210916, end: 20210916
  2. BIOFERMIN [BIFIDOBACTERIUM NOS] [Concomitant]
  3. DAIMEDIN 3B [Concomitant]
  4. ESOMEPRAZOLE MAGNESIUM [Concomitant]
     Active Substance: ESOMEPRAZOLE MAGNESIUM
  5. PITAVASTATIN CA KYORIN [Concomitant]
  6. AZOSEMIDE [Concomitant]
     Active Substance: AZOSEMIDE
  7. EDOXABAN TOSYLATE [Concomitant]
     Active Substance: EDOXABAN TOSYLATE
  8. AZELNIDIPINE\OLMESARTAN MEDOXOMIL [Concomitant]
     Active Substance: AZELNIDIPINE\OLMESARTAN MEDOXOMIL
  9. BROTIZOLAM [Concomitant]
     Active Substance: BROTIZOLAM
  10. TRANEXAMIC ACID [Concomitant]
     Active Substance: TRANEXAMIC ACID
  11. CINAL [ASCORBIC ACID;CALCIUM PANTOTHENATE] [Concomitant]
  12. MAGNESIUM OXIDE [Concomitant]
     Active Substance: MAGNESIUM OXIDE
  13. LAC-B GRANULAR POWDER N [Concomitant]
  14. DOMPERIDONE [Concomitant]
     Active Substance: DOMPERIDONE
  15. HERBALS [Concomitant]
     Active Substance: HERBALS
  16. VIBEGRON [Concomitant]
     Active Substance: VIBEGRON
     Indication: Hypertonic bladder
  17. IMIDAFENACIN OD [Concomitant]
     Indication: Hypertonic bladder

REACTIONS (4)
  - Cerebral haemorrhage [Fatal]
  - Renal impairment [Recovered/Resolved]
  - Urine output decreased [Recovered/Resolved]
  - Dehydration [Recovered/Resolved]

NARRATIVE: CASE EVENT DATE: 20210917
